FAERS Safety Report 15452634 (Version 2)
Quarter: 2018Q4

REPORT INFORMATION
  Report Type: Report from Study
  Country: US (occurrence: US)
  Receive Date: 20181001
  Receipt Date: 20181030
  Transmission Date: 20190204
  Serious: Yes (Other)
  Sender: FDA-Public Use
  Company Number: US-JAZZ-2018-US-012392

PATIENT
  Sex: Male

DRUGS (2)
  1. XYREM [Suspect]
     Active Substance: SODIUM OXYBATE
     Dosage: 3 G, BID
     Route: 048
     Dates: start: 201806
  2. XYREM [Suspect]
     Active Substance: SODIUM OXYBATE
     Indication: NARCOLEPSY
     Dosage: 2.25 G, BID
     Route: 048
     Dates: start: 201801, end: 201806

REACTIONS (10)
  - Foot deformity [Unknown]
  - Back disorder [Unknown]
  - Arthritis [Unknown]
  - Arthropathy [Unknown]
  - Adjustment disorder [Unknown]
  - Lung disorder [Unknown]
  - Post-traumatic stress disorder [Unknown]
  - Major depression [Unknown]
  - Exostosis [Unknown]
  - Fluid retention [Unknown]
